FAERS Safety Report 5947466-3 (Version None)
Quarter: 2008Q4

REPORT INFORMATION
  Report Type: 
  Country: None (occurrence: None)
  Receive Date: 20081110
  Receipt Date: 20081029
  Transmission Date: 20090506
  Serious: Yes (Hospitalization)
  Sender: FDA-Public Use
  Company Number: PHHO2008FR12165

PATIENT
  Sex: Female
  Weight: 73 kg

DRUGS (4)
  1. BLINDED NO TREATMENT RECEIVED NOMED [Suspect]
     Indication: CARCINOID TUMOUR
     Dosage: UNK
     Dates: start: 20080222, end: 20081001
  2. BLINDED PLACEBO COMP-PLA+ [Suspect]
     Indication: CARCINOID TUMOUR
     Dosage: UNK
     Dates: start: 20080222, end: 20081001
  3. BLINDED RAD 666 RAD+TAB [Suspect]
     Indication: CARCINOID TUMOUR
     Dosage: UNK
     Dates: start: 20080222, end: 20081001
  4. SANDOSTATIN LAR [Suspect]
     Indication: CARCINOID SYNDROME

REACTIONS (4)
  - COUGH [None]
  - DYSPNOEA [None]
  - HYPOXIA [None]
  - INTERSTITIAL LUNG DISEASE [None]
